FAERS Safety Report 16157159 (Version 1)
Quarter: 2019Q2

REPORT INFORMATION
  Report Type: Spontaneous
  Country: US (occurrence: US)
  Receive Date: 20190403
  Receipt Date: 20190403
  Transmission Date: 20190711
  Serious: Yes (Other)
  Sender: FDA-Public Use
  Company Number: None

PATIENT
  Age: 8 Year
  Sex: Male
  Weight: 40.5 kg

DRUGS (2)
  1. QUILLIVANT XR [Suspect]
     Active Substance: METHYLPHENIDATE HYDROCHLORIDE
     Indication: ATTENTION DEFICIT/HYPERACTIVITY DISORDER
     Dosage: ?          QUANTITY:1 7 ML;?
     Route: 048
     Dates: start: 20190401, end: 20190403
  2. GUAFACINE [Concomitant]

REACTIONS (3)
  - Expired product administered [None]
  - Aggression [None]
  - Product quality issue [None]

NARRATIVE: CASE EVENT DATE: 20190401
